FAERS Safety Report 9323911 (Version 1)
Quarter: 2013Q2

REPORT INFORMATION
  Report Type: Spontaneous
  Country: US (occurrence: US)
  Receive Date: 20130603
  Receipt Date: 20130603
  Transmission Date: 20140414
  Serious: Yes (Other)
  Sender: FDA-Public Use
  Company Number: US-PFIZER INC-2013163703

PATIENT
  Age: 61 Year
  Sex: Female
  Weight: 98.4 kg

DRUGS (1)
  1. AROMASIN [Suspect]
     Indication: BREAST CANCER
     Dosage: 25 MG, 1X/DAY
     Route: 048
     Dates: start: 20100922, end: 20130524

REACTIONS (2)
  - Osteopenia [Unknown]
  - Anaemia [Unknown]
